FAERS Safety Report 23434136 (Version 1)
Quarter: 2024Q1

REPORT INFORMATION
  Report Type: Report from Study
  Country: HN (occurrence: HN)
  Receive Date: 20240123
  Receipt Date: 20240123
  Transmission Date: 20240409
  Serious: Yes (Hospitalization)
  Sender: FDA-Public Use
  Company Number: HN-MYLANLABS-2024M1007175

PATIENT
  Age: 85 Year
  Sex: Male

DRUGS (4)
  1. LIPITOR [Suspect]
     Active Substance: ATORVASTATIN CALCIUM
     Indication: Blood cholesterol
     Dosage: 1 DOSAGE FORM, QD
     Route: 048
     Dates: start: 202207, end: 202307
  2. NORVASC [Suspect]
     Active Substance: AMLODIPINE BESYLATE
     Indication: Hypertension
     Dosage: UNK
     Route: 048
  3. BRILINTA [Concomitant]
     Active Substance: TICAGRELOR
     Indication: Antiplatelet therapy
     Dosage: 2 DOSAGE FORM, QD
     Route: 048
     Dates: start: 202207
  4. VITAMIN D [Concomitant]
     Active Substance: VITAMIN D NOS
     Indication: Vitamin D deficiency
     Dosage: 1 DOSAGE FORM, QD
     Route: 048
     Dates: start: 202307

REACTIONS (4)
  - Decreased appetite [Recovered/Resolved]
  - Illness [Not Recovered/Not Resolved]
  - Depression [Recovered/Resolved]
  - Vitamin D deficiency [Recovered/Resolved]

NARRATIVE: CASE EVENT DATE: 20230501
